FAERS Safety Report 24401094 (Version 3)
Quarter: 2024Q4

REPORT INFORMATION
  Report Type: Report from Study
  Country: CH (occurrence: CH)
  Receive Date: 20241006
  Receipt Date: 20241119
  Transmission Date: 20250114
  Serious: Yes (Death)
  Sender: ABBVIE
  Company Number: CH-ABBVIE-5952318

PATIENT
  Age: 79 Year
  Sex: Female

DRUGS (2)
  1. CARBIDOPA\LEVODOPA [Suspect]
     Active Substance: CARBIDOPA\LEVODOPA
     Indication: Parkinson^s disease
     Route: 050
     Dates: start: 20221017
  2. CARBIDOPA\LEVODOPA [Suspect]
     Active Substance: CARBIDOPA\LEVODOPA
     Dosage: MD: 3.0 ML, CRD: 2.7 ML/H, ED: 0.8 ML?FREQUENCY TEXT: 16H THERAPY
     Route: 050
     Dates: start: 20231115, end: 20241004

REACTIONS (4)
  - Death [Fatal]
  - Device occlusion [Recovered/Resolved]
  - Device kink [Recovered/Resolved]
  - Bezoar [Unknown]

NARRATIVE: CASE EVENT DATE: 20241004
